FAERS Safety Report 6142978-4 (Version None)
Quarter: 2009Q2

REPORT INFORMATION
  Report Type: 
  Country: None (occurrence: None)
  Receive Date: 20090403
  Receipt Date: 20090324
  Transmission Date: 20091009
  Serious: Yes (Hospitalization)
  Sender: FDA-Public Use
  Company Number: FR-ROCHE-623829

PATIENT
  Age: 49 Year
  Sex: Female

DRUGS (1)
  1. ROCEPHIN [Suspect]
     Indication: LYME DISEASE
     Route: 042
     Dates: start: 20090104, end: 20090125

REACTIONS (2)
  - CHOLESTASIS [None]
  - CYTOLYTIC HEPATITIS [None]
